FAERS Safety Report 9840455 (Version 1)
Quarter: 2013Q4

REPORT INFORMATION
  Report Type: Spontaneous
  Country: US (occurrence: None)
  Receive Date: 20131211
  Receipt Date: 20131211
  Transmission Date: 20140711
  Serious: Yes (Other)
  Sender: FDA-Public Use
  Company Number: TKT01200700090

PATIENT
  Age: 12 Year
  Sex: Male
  Weight: 35.2 kg

DRUGS (5)
  1. IDURSULFASE [Suspect]
     Indication: MUCOPOLYSACCHARIDOSIS II
     Dosage: UNK (0.5 MG/KG, 1 IN 1 WK), INTRAVENOUS DRIP
     Route: 041
     Dates: start: 20061106
  2. PULMICORT (BUDESONIDE) [Concomitant]
  3. TYLENOL 3 WITH CODEINE  (GALENIC /PARACETAMOL/CODEINE/) [Concomitant]
  4. VERAPAMIL (VERAPAMIL) [Concomitant]
  5. XOPENEX (LEVOSALBUTAMOL) (45 MICROGRAM)G) [Concomitant]

REACTIONS (5)
  - Flushing [None]
  - Oxygen saturation decreased [None]
  - Blood pressure decreased [None]
  - Cyanosis [None]
  - Infusion related reaction [None]
